FAERS Safety Report 9879670 (Version 1)
Quarter: 2014Q1

REPORT INFORMATION
  Report Type: Spontaneous
  Country: US (occurrence: US)
  Receive Date: 20140206
  Receipt Date: 20140206
  Transmission Date: 20141002
  Serious: Yes (Other)
  Sender: FDA-Public Use
  Company Number: US-TAKEDA-2014TUS000815

PATIENT
  Sex: 0

DRUGS (3)
  1. NESINA [Suspect]
     Route: 048
  2. UNKNOWN OTHER MEDICATIONS [Concomitant]
  3. HMG COA REDUCTASE INHIBITORS [Concomitant]

REACTIONS (4)
  - Hepatic failure [Unknown]
  - Muscular weakness [Unknown]
  - Hepatotoxicity [Unknown]
  - Shock [Unknown]
